FAERS Safety Report 6197293-X (Version None)
Quarter: 2009Q2

REPORT INFORMATION
  Report Type: 
  Country: None (occurrence: None)
  Receive Date: 20090521
  Receipt Date: 20090514
  Transmission Date: 20091009
  Serious: Yes (Other)
  Sender: FDA-Public Use
  Company Number: US-JNJFOC-20090503524

PATIENT
  Age: 12 Year
  Sex: Female
  Weight: 52.16 kg

DRUGS (9)
  1. CONCERTA [Suspect]
     Route: 048
  2. CONCERTA [Suspect]
     Indication: ATTENTION DEFICIT/HYPERACTIVITY DISORDER
     Dosage: 18-36MG TABLETS
     Route: 048
  3. RISPERIDONE [Suspect]
     Indication: BIPOLAR DISORDER
     Route: 048
  4. PROZAC [Concomitant]
     Indication: DEPRESSION
     Route: 048
  5. CLONAZEPAM [Concomitant]
     Indication: ANXIETY
     Route: 048
  6. FOCALIN [Concomitant]
     Indication: ATTENTION DEFICIT/HYPERACTIVITY DISORDER
     Route: 048
  7. ZYRTEC [Concomitant]
     Indication: MULTIPLE ALLERGIES
     Route: 048
  8. CYPROHEPTADINE HCL [Concomitant]
     Indication: MULTIPLE ALLERGIES
     Dosage: 45 TABLETS
     Route: 048
  9. FISH OIL [Concomitant]
     Indication: BLOOD CHOLESTEROL INCREASED
     Route: 048

REACTIONS (2)
  - AFFECT LABILITY [None]
  - BIPOLAR DISORDER [None]
